FAERS Safety Report 13141094 (Version 1)
Quarter: 2017Q1

REPORT INFORMATION
  Report Type: Spontaneous
  Country: US (occurrence: US)
  Receive Date: 20170121
  Receipt Date: 20170121
  Transmission Date: 20170428
  Serious: Yes (Other)
  Sender: FDA-Public Use
  Company Number: None

PATIENT
  Age: 72 Year
  Sex: Female
  Weight: 79.2 kg

DRUGS (4)
  1. ELIQUIS [Suspect]
     Active Substance: APIXABAN
     Indication: THROMBOSIS PROPHYLAXIS
     Dosage: ?          QUANTITY:60 TABLET(S);?
     Route: 048
     Dates: start: 20160829, end: 20160901
  2. LOSARTAN. [Concomitant]
     Active Substance: LOSARTAN
  3. GLIMEIPRIDE [Concomitant]
  4. METFORMIN [Concomitant]
     Active Substance: METFORMIN HYDROCHLORIDE

REACTIONS (5)
  - Contusion [None]
  - Peripheral swelling [None]
  - Pain in extremity [None]
  - Haemorrhage [None]
  - Nerve injury [None]

NARRATIVE: CASE EVENT DATE: 20160829
